FAERS Safety Report 8960271 (Version 2)
Quarter: 2012Q4

REPORT INFORMATION
  Report Type: 
  Country: BR (occurrence: BR)
  Receive Date: 20121212
  Receipt Date: 20121219
  Transmission Date: 20130627
  Serious: Yes (Death)
  Sender: FDA-Public Use
  Company Number: BR-PFIZER INC-2012309680

PATIENT
  Age: 58 Year
  Sex: Male

DRUGS (1)
  1. SUTENT [Suspect]
     Indication: PANCREATIC NEUROENDOCRINE TUMOR
     Dosage: 37.5 mg, UNK
     Route: 048
     Dates: start: 20120727, end: 201209

REACTIONS (2)
  - Pneumonia [Fatal]
  - Septic shock [Fatal]
